FAERS Safety Report 23607418 (Version 1)
Quarter: 2024Q1

REPORT INFORMATION
  Report Type: Spontaneous
  Country: AT (occurrence: AT)
  Receive Date: 20240307
  Receipt Date: 20240307
  Transmission Date: 20240409
  Serious: Yes (Other)
  Sender: FDA-Public Use
  Company Number: AT-009507513-2402AUT008956

PATIENT
  Age: 44 Year
  Sex: Female

DRUGS (10)
  1. CARBOPLATIN [Suspect]
     Active Substance: CARBOPLATIN
     Indication: Invasive ductal breast carcinoma
     Dosage: UNK UNK, WEEKLY
     Dates: start: 20221007, end: 20221230
  2. EPIRUBICIN HYDROCHLORIDE [Suspect]
     Active Substance: EPIRUBICIN HYDROCHLORIDE
     Indication: Invasive ductal breast carcinoma
     Dosage: UNK
     Dates: start: 20230110, end: 20230317
  3. PEMBROLIZUMAB [Suspect]
     Active Substance: PEMBROLIZUMAB
     Indication: Invasive ductal breast carcinoma
     Dosage: UNK
     Dates: start: 20221007, end: 20221230
  4. PEMBROLIZUMAB [Suspect]
     Active Substance: PEMBROLIZUMAB
     Dosage: UNK
     Dates: start: 20230110, end: 20230317
  5. PEMBROLIZUMAB [Suspect]
     Active Substance: PEMBROLIZUMAB
     Dosage: UNK
     Dates: start: 20230509
  6. PACLITAXEL [Suspect]
     Active Substance: PACLITAXEL
     Indication: Invasive ductal breast carcinoma
     Dosage: UNK UNK, WEEKLY
     Dates: start: 20221007, end: 20221230
  7. ERIBULIN [Suspect]
     Active Substance: ERIBULIN
     Indication: Invasive ductal breast carcinoma
     Dosage: UNK
     Dates: start: 202310
  8. CYCLOPHOSPHAMIDE [Suspect]
     Active Substance: CYCLOPHOSPHAMIDE
     Indication: Invasive ductal breast carcinoma
     Dosage: UNK
     Dates: start: 20230110, end: 20230317
  9. SACITUZUMAB GOVITECAN [Suspect]
     Active Substance: SACITUZUMAB GOVITECAN
     Indication: Invasive ductal breast carcinoma
     Dosage: UNK
     Dates: start: 202307
  10. CAPECITABINE [Suspect]
     Active Substance: CAPECITABINE
     Indication: Invasive ductal breast carcinoma
     Dosage: UNK
     Dates: start: 20230509

REACTIONS (19)
  - Neutropenia [Unknown]
  - Polyneuropathy in malignant disease [Unknown]
  - Weight decreased [Unknown]
  - Abdominal pain [Unknown]
  - Epistaxis [Unknown]
  - Nasal dryness [Unknown]
  - Cardiovascular disorder [Unknown]
  - Dizziness [Unknown]
  - Neoplasm progression [Unknown]
  - Back pain [Unknown]
  - Skin reaction [Unknown]
  - Constipation [Unknown]
  - Anaemia [Unknown]
  - Perioral dermatitis [Unknown]
  - Dysgeusia [Unknown]
  - Fatigue [Unknown]
  - Nausea [Unknown]
  - Sensation of foreign body [Unknown]
  - Eastern Cooperative Oncology Group performance status worsened [Unknown]

NARRATIVE: CASE EVENT DATE: 20220101
